FAERS Safety Report 4668352-5 (Version None)
Quarter: 2005Q2

REPORT INFORMATION
  Report Type: 
  Country: None (occurrence: None)
  Receive Date: 20050523
  Receipt Date: 20050224
  Transmission Date: 20051028
  Serious: Yes (Disabling)
  Sender: FDA-Public Use
  Company Number: PHEH2005US02460

PATIENT
  Age: 79 Year
  Sex: Female

DRUGS (6)
  1. ZOMETA [Suspect]
     Indication: BREAST CANCER
  2. AREDIA [Suspect]
     Indication: HYPERCALCAEMIA OF MALIGNANCY
  3. CELEBREX [Concomitant]
  4. DECADRON                                /CAN/ [Concomitant]
  5. XELODA [Concomitant]
  6. ALLEGRA [Concomitant]

REACTIONS (2)
  - ASEPTIC NECROSIS BONE [None]
  - JAW DISORDER [None]
